FAERS Safety Report 5801111-6 (Version None)
Quarter: 2008Q3

REPORT INFORMATION
  Report Type: 
  Country: None (occurrence: None)
  Receive Date: 20080702
  Receipt Date: 20080625
  Transmission Date: 20090109
  Serious: Yes (Life-Threatening, Hospitalization)
  Sender: FDA-Public Use
  Company Number: ADE# 08-094

PATIENT
  Age: 78 Year
  Sex: Male
  Weight: 60.782 kg

DRUGS (3)
  1. DIGOXIN [Suspect]
     Indication: ARRHYTHMIA
     Dosage: 1 TABLET DAILY
     Route: 048
     Dates: start: 20080508, end: 20080619
  2. PACERONE [Suspect]
     Indication: ARRHYTHMIA
     Dosage: 100MG DAILY
     Dates: start: 20080429
  3. AMIODARONE HCL [Concomitant]

REACTIONS (7)
  - ARRHYTHMIA [None]
  - CHOLECYSTITIS INFECTIVE [None]
  - HEART RATE DECREASED [None]
  - HYPOTENSION [None]
  - INCISION SITE INFECTION [None]
  - PANCREATITIS [None]
  - PHARMACEUTICAL PRODUCT COMPLAINT [None]
